FAERS Safety Report 6080079-4 (Version None)
Quarter: 2009Q1

REPORT INFORMATION
  Report Type: 
  Country: None (occurrence: None)
  Receive Date: 20090217
  Receipt Date: 20090204
  Transmission Date: 20090719
  Serious: Yes (Death)
  Sender: FDA-Public Use
  Company Number: JP-PFIZER INC-2008087410

PATIENT

DRUGS (7)
  1. AMLODIPINE BESILATE [Suspect]
     Indication: HYPERTENSION
     Dosage: 5 MG, UNK
     Route: 048
     Dates: start: 20080301
  2. PIMENOL [Suspect]
     Indication: MITRAL VALVE REPAIR
     Dosage: 200 MG, UNK
     Route: 048
     Dates: start: 20080301, end: 20080903
  3. PARIET [Suspect]
     Indication: GASTRITIS
     Dosage: 10 MG, UNK
     Route: 048
     Dates: start: 20080301
  4. LASIX [Concomitant]
     Indication: HYPERTENSION
     Dosage: 20 MG, 1X/DAY
     Dates: start: 20080301
  5. MUCOSTA [Concomitant]
     Indication: GASTRITIS
     Dosage: 400 MG, 1X/DAY
     Route: 048
     Dates: start: 20080301
  6. MAGNESIUM OXIDE [Concomitant]
     Indication: CONSTIPATION
     Dosage: 1320 MILLIGRAM/DAY
     Route: 048
     Dates: start: 20080301
  7. URSO 250 [Concomitant]
     Indication: HEPATIC FUNCTION ABNORMAL
     Dosage: 600 MILLIGRAM/DAY
     Route: 048
     Dates: start: 20080903

REACTIONS (1)
  - HEPATITIS FULMINANT [None]
